FAERS Safety Report 6544204-0 (Version None)
Quarter: 2010Q1

REPORT INFORMATION
  Report Type: 
  Country: None (occurrence: None)
  Receive Date: 20100119
  Receipt Date: 20100119
  Transmission Date: 20100710
  Serious: No
  Sender: FDA-Public Use
  Company Number: None

PATIENT
  Age: 3 Year
  Sex: Female
  Weight: 12.7007 kg

DRUGS (2)
  1. MOTRIN IB [Suspect]
     Indication: PYREXIA
     Dosage: 1 TABLET EVERY 6 HOURS PO
     Route: 048
     Dates: start: 20100115, end: 20100116
  2. CHILDRENS TYLENOL MELTAWAYS 80MG ACETAMINOPHEN TYLENOL [Suspect]
     Indication: PYREXIA
     Dosage: 2 TABLETS EVERY 6 HOURS PO
     Route: 048
     Dates: start: 20100115, end: 20100116

REACTIONS (4)
  - ABDOMINAL PAIN [None]
  - DIARRHOEA [None]
  - FATIGUE [None]
  - PRODUCT QUALITY ISSUE [None]
